FAERS Safety Report 4307659-8 (Version None)
Quarter: 2004Q1

REPORT INFORMATION
  Report Type: 
  Country: None (occurrence: None)
  Receive Date: 20040226
  Receipt Date: 20030519
  Transmission Date: 20041129
  Serious: Yes (Hospitalization)
  Sender: FDA-Public Use
  Company Number: 530#5#2003-00004

PATIENT
  Age: 65 Year
  Sex: Male

DRUGS (11)
  1. ALPROSTADIL [Suspect]
     Indication: INTERMITTENT CLAUDICATION
     Dosage: 1.2 TIMES 60 UG PER WEEK, INTRAVENOUS DRIP
     Route: 041
     Dates: start: 20030331, end: 20030512
  2. ALTERNATIVE DRUG (DOSE UNKNOWN), UNKNOWN (BLINDED DRUG) (ALTERNATIVE D [Suspect]
     Indication: INTERMITTENT CLAUDICATION
     Dosage: 2 X 600 MG PER DAY, ORAL
     Route: 048
     Dates: start: 20030331, end: 20030516
  3. BISOPROLOL 5MG, TABLETS (BISOPROLOL) [Concomitant]
  4. DILTIAZEM HYDROCHLORIDE 90MG, CAPSULES SR (DILTIAZEM) [Concomitant]
  5. DOXAZOSIN 2MG, TABLETS (DOXAZOSIN) [Concomitant]
  6. ACETYLSALICYCLIC ACID 300MG, TABLETS (ACETYLSALICYCLIC ACID) [Concomitant]
  7. PIRETANIDE 6 MG, TABLETS (PIRETANIDE) [Concomitant]
  8. ATORVASTATIN 40MG, COATED TABLETS (ATORVASTATIN) [Concomitant]
  9. DOXAZOSIN 2MG, TABLETS (DOXAZOSIN) [Concomitant]
  10. INSULIN HUMAN (DOSE UNKNOWN), AMP SC (INSULIN HUMAN INJECTON , ISOPHAN [Concomitant]
  11. INSULIN GLARGINE (DOSE UNKNOWN), AMP SC (INSULIN HUMAN) [Concomitant]

REACTIONS (6)
  - ANGINA PECTORIS [None]
  - BLOOD CREATINE PHOSPHOKINASE INCREASED [None]
  - COUGH [None]
  - MYOGLOBIN BLOOD INCREASED [None]
  - OEDEMA PERIPHERAL [None]
  - TROPONIN I INCREASED [None]
